FAERS Safety Report 18299337 (Version 2)
Quarter: 2021Q1

REPORT INFORMATION
  Report Type: Spontaneous
  Country: FR (occurrence: FR)
  Receive Date: 20200922
  Receipt Date: 20210218
  Transmission Date: 20210419
  Serious: Yes (Hospitalization)
  Sender: FDA-Public Use
  Company Number: FR-ETHYPHARM-202001439

PATIENT

DRUGS (2)
  1. SELINCRO [Interacting]
     Active Substance: NALMEFENE HYDROCHLORIDE DIHYDRATE
     Indication: ALCOHOLISM
     Route: 048
  2. BUPRENORPHINE. [Suspect]
     Active Substance: BUPRENORPHINE
     Indication: DRUG DEPENDENCE
     Route: 065

REACTIONS (3)
  - Withdrawal syndrome [Unknown]
  - Contraindicated product administered [Unknown]
  - Drug interaction [Unknown]

NARRATIVE: CASE EVENT DATE: 202004
